FAERS Safety Report 23818164 (Version 1)
Quarter: 2024Q2

REPORT INFORMATION
  Report Type: Spontaneous
  Country: US (occurrence: US)
  Receive Date: 20240506
  Receipt Date: 20240506
  Transmission Date: 20240715
  Serious: No
  Sender: FDA-Public Use
  Company Number: US-UCBSA-2023038426

PATIENT
  Age: 80 Year
  Sex: Female

DRUGS (2)
  1. CIMZIA [Suspect]
     Active Substance: CERTOLIZUMAB PEGOL
     Indication: Rheumatoid arthritis
     Dosage: 200 MILLIGRAM PER MILLILITRE, EV 4 WEEKS
     Route: 058
  2. OIL [Suspect]
     Active Substance: MINERAL OIL
     Indication: Product used for unknown indication
     Dosage: UNK

REACTIONS (4)
  - Erythema [Unknown]
  - Peripheral swelling [Unknown]
  - Pruritus [Unknown]
  - Product storage error [Unknown]

NARRATIVE: CASE EVENT DATE: 20230719
